FAERS Safety Report 7309816-5 (Version None)
Quarter: 2011Q1

REPORT INFORMATION
  Report Type: 
  Country: None (occurrence: None)
  Receive Date: 20110224
  Receipt Date: 20110211
  Transmission Date: 20110831
  Serious: No
  Sender: FDA-Public Use
  Company Number: US-BIOGENIDEC-2011BI006143

PATIENT
  Sex: Female

DRUGS (2)
  1. TYSABRI [Suspect]
     Indication: MULTIPLE SCLEROSIS
     Route: 042
     Dates: start: 20080703
  2. TYSABRI [Suspect]
     Route: 042
     Dates: start: 20071101, end: 20080103

REACTIONS (4)
  - ANXIETY [None]
  - DEPRESSION [None]
  - GAIT DISTURBANCE [None]
  - FATIGUE [None]
